FAERS Safety Report 16237562 (Version 4)
Quarter: 2025Q2

REPORT INFORMATION
  Report Type: Spontaneous
  Country: US (occurrence: US)
  Receive Date: 20190425
  Receipt Date: 20250611
  Transmission Date: 20250716
  Serious: Yes (Other)
  Sender: PURDUE
  Company Number: US-PURDUE-USA-2019-0146936

PATIENT
  Sex: Female

DRUGS (4)
  1. OXYCONTIN [Suspect]
     Active Substance: OXYCODONE HYDROCHLORIDE
     Indication: Pain
     Dosage: 80 MG, TID
     Route: 048
     Dates: start: 2001
  2. OXYCONTIN [Suspect]
     Active Substance: OXYCODONE HYDROCHLORIDE
     Dosage: 40 MG, TID
     Route: 048
     Dates: end: 201905
  3. OXYCODONE HYDROCHLORIDE [Suspect]
     Active Substance: OXYCODONE HYDROCHLORIDE
     Indication: Product used for unknown indication
     Route: 048
  4. CANNABIS SATIVA SUBSP. INDICA TOP [Suspect]
     Active Substance: CANNABIS SATIVA SUBSP. INDICA TOP
     Indication: Pain management
     Route: 055

REACTIONS (17)
  - Weight decreased [Unknown]
  - Intestinal resection [Unknown]
  - Ileostomy [Unknown]
  - Colostomy [Unknown]
  - Abdominal abscess [Unknown]
  - Stoma creation [Unknown]
  - Surgery [Unknown]
  - Drug dependence [Unknown]
  - Substance abuse [Unknown]
  - Unevaluable event [Unknown]
  - General physical health deterioration [Unknown]
  - Vomiting [Unknown]
  - Pain [Unknown]
  - Unevaluable event [Unknown]
  - Scar [Unknown]
  - Off label use [Unknown]
  - Impaired quality of life [Unknown]
